FAERS Safety Report 7798735-6 (Version None)
Quarter: 2011Q4

REPORT INFORMATION
  Report Type: 
  Country: None (occurrence: None)
  Receive Date: 20111006
  Receipt Date: 20110927
  Transmission Date: 20120403
  Serious: No
  Sender: FDA-Public Use
  Company Number: US-BIOGENIDEC-2011BI037079

PATIENT
  Age: 25 Year
  Sex: Male

DRUGS (2)
  1. AVONEX [Suspect]
     Indication: MULTIPLE SCLEROSIS
     Route: 030
     Dates: start: 20110804
  2. AVONEX [Suspect]
     Route: 030
     Dates: start: 20071201, end: 20080601

REACTIONS (3)
  - OVERDOSE [None]
  - CHEST PAIN [None]
  - CHILLS [None]
